FAERS Safety Report 10811104 (Version 1)
Quarter: 2015Q1

REPORT INFORMATION
  Report Type: Report from Study
  Country: US (occurrence: US)
  Receive Date: 20150217
  Receipt Date: 20150217
  Transmission Date: 20150721
  Serious: No
  Sender: FDA-Public Use
  Company Number: US-ABBVIE-14K-163-1212618-00

PATIENT
  Age: 57 Year
  Sex: Female

DRUGS (8)
  1. CLARITIN [Suspect]
     Active Substance: LORATADINE
     Indication: SINUSITIS
     Dates: start: 201312, end: 201405
  2. ARIMIDEX [Concomitant]
     Active Substance: ANASTROZOLE
     Indication: BREAST CANCER
  3. VITAMIN C [Concomitant]
     Active Substance: ASCORBIC ACID
     Indication: PRODUCT USED FOR UNKNOWN INDICATION
  4. MULTIVITAMIN [Concomitant]
     Active Substance: VITAMINS
     Indication: PRODUCT USED FOR UNKNOWN INDICATION
  5. CALCIUM WITH VITAMIN D [Concomitant]
     Active Substance: CALCIUM\VITAMIN D
     Indication: PRODUCT USED FOR UNKNOWN INDICATION
  6. HUMIRA [Suspect]
     Active Substance: ADALIMUMAB
     Indication: CROHN^S DISEASE
     Dates: start: 201309
  7. PREDNISONE. [Suspect]
     Active Substance: PREDNISONE
     Indication: PRODUCT USED FOR UNKNOWN INDICATION
     Dates: start: 201308
  8. VICODIN [Concomitant]
     Active Substance: ACETAMINOPHEN\HYDROCODONE BITARTRATE
     Indication: INSOMNIA
     Dosage: 5/ 500 MG

REACTIONS (12)
  - Epistaxis [Unknown]
  - Headache [Unknown]
  - Nasal dryness [Unknown]
  - Weight increased [Unknown]
  - Migraine [Unknown]
  - Blood pressure increased [Unknown]
  - Sinusitis [Recovering/Resolving]
  - Hyperaesthesia [Unknown]
  - Sinusitis [Recovered/Resolved]
  - Colitis [Not Recovered/Not Resolved]
  - Vitamin D deficiency [Unknown]
  - Fatigue [Unknown]

NARRATIVE: CASE EVENT DATE: 201309
